FAERS Safety Report 7801394-7 (Version None)
Quarter: 2011Q4

REPORT INFORMATION
  Report Type: 
  Country: None (occurrence: None)
  Receive Date: 20111007
  Receipt Date: 20110926
  Transmission Date: 20120403
  Serious: Yes (Hospitalization, Other)
  Sender: FDA-Public Use
  Company Number: US-BAYER-201012070NA

PATIENT
  Age: 68 Year
  Sex: Female
  Weight: 102 kg

DRUGS (21)
  1. TRASYLOL [Suspect]
     Indication: CORONARY ARTERY BYPASS
     Dosage: 200 CC, THEN INFUSION AT 50CC/HR
     Route: 042
     Dates: start: 20031022, end: 20031022
  2. ATENOLOL [Concomitant]
     Route: 048
  3. BETAPACE [Concomitant]
  4. ASPIRIN [Concomitant]
     Dosage: UNK
     Route: 048
     Dates: end: 20031021
  5. INSULIN [Concomitant]
     Dosage: UNK
     Route: 042
     Dates: start: 20031022
  6. PLAVIX [Concomitant]
     Dosage: 75 MG
     Route: 048
     Dates: start: 20031001
  7. VASOTEC [Concomitant]
  8. IMDUR [Concomitant]
     Dosage: 60 MG
     Route: 048
  9. PRINIVIL [Concomitant]
     Dosage: 2.5 MG
     Route: 048
     Dates: start: 20031001
  10. LIPITOR [Concomitant]
     Route: 048
  11. FENTANYL [Concomitant]
     Dosage: UNK
     Route: 042
     Dates: start: 20031022
  12. VERSED [Concomitant]
     Dosage: UNK
     Route: 042
     Dates: start: 20031022
  13. COUMADIN [Concomitant]
  14. ANCEF [Concomitant]
     Dosage: 2 GRAMS
     Route: 042
     Dates: start: 20031022
  15. NITROGLYCERIN [Concomitant]
     Dosage: UNK
     Route: 042
     Dates: start: 20031022
  16. NIPRIDE [Concomitant]
  17. SODIUM BICARBONATE [Concomitant]
     Dosage: 1 AMP
     Route: 042
     Dates: start: 20031022
  18. ZOCOR [Concomitant]
     Dosage: 20 MG
     Route: 048
  19. HEPARIN [Concomitant]
     Dosage: UNK
     Route: 042
     Dates: start: 20031014
  20. PROPOFOL [Concomitant]
     Dosage: UNK
     Route: 042
     Dates: start: 20031022
  21. ACETYLSALICYLIC ACID SRT [Concomitant]

REACTIONS (16)
  - PAIN [None]
  - MONOPLEGIA [None]
  - INJURY [None]
  - MULTI-ORGAN FAILURE [None]
  - RENAL FAILURE [None]
  - ANXIETY [None]
  - FEAR [None]
  - EMOTIONAL DISTRESS [None]
  - UNEVALUABLE EVENT [None]
  - DEPRESSION [None]
  - RENAL INJURY [None]
  - ANHEDONIA [None]
  - CEREBROVASCULAR ACCIDENT [None]
  - RENAL IMPAIRMENT [None]
  - IRRITABILITY [None]
  - STRESS [None]
